FAERS Safety Report 22235261 (Version 1)
Quarter: 2023Q2

REPORT INFORMATION
  Report Type: Spontaneous
  Country: ES (occurrence: ES)
  Receive Date: 20230420
  Receipt Date: 20230420
  Transmission Date: 20230722
  Serious: Yes (Hospitalization, Other)
  Sender: FDA-Public Use
  Company Number: ES-SA-SAC20220526000367

PATIENT
  Age: 72 Year
  Sex: Male
  Weight: 82 kg

DRUGS (3)
  1. INSULIN GLARGINE [Suspect]
     Active Substance: INSULIN GLARGINE
     Indication: Type 2 diabetes mellitus
     Dosage: 11 U, DAILY
     Route: 058
     Dates: start: 20220523
  2. LANTUS [Suspect]
     Active Substance: INSULIN GLARGINE
     Indication: Product used for unknown indication
     Dosage: UNK UNK, UNKNOWN
     Route: 065
  3. INSULIN NOS [Concomitant]
     Active Substance: INSULIN NOS
     Indication: Type 2 diabetes mellitus

REACTIONS (6)
  - Gangrene [Recovering/Resolving]
  - Condition aggravated [Recovering/Resolving]
  - Infection [Recovering/Resolving]
  - Renal disorder [Recovering/Resolving]
  - Decreased appetite [Unknown]
  - Hypoglycaemia [Unknown]
